FAERS Safety Report 18335759 (Version 1)
Quarter: 2020Q4

REPORT INFORMATION
  Report Type: Report from Study
  Country: IN (occurrence: IN)
  Receive Date: 20201001
  Receipt Date: 20201001
  Transmission Date: 20210113
  Serious: Yes (Other)
  Sender: FDA-Public Use
  Company Number: NVSC2020IN251314

PATIENT
  Sex: Female

DRUGS (1)
  1. PIVIKTO [ALPELISIB] [Suspect]
     Active Substance: ALPELISIB
     Indication: BREAST CANCER METASTATIC
     Dosage: 300 MG, QD
     Route: 048
     Dates: start: 20200808, end: 20200921

REACTIONS (4)
  - Fatigue [Unknown]
  - Pulmonary oedema [Not Recovered/Not Resolved]
  - Hyperglycaemia [Unknown]
  - Decreased appetite [Unknown]
